FAERS Safety Report 9176558 (Version 3)
Quarter: 2013Q2

REPORT INFORMATION
  Report Type: Spontaneous
  Country: JP (occurrence: None)
  Receive Date: 20130319
  Receipt Date: 20130626
  Transmission Date: 20140414
  Serious: Yes (Hospitalization, Other)
  Sender: FDA-Public Use
  Company Number: ENT 2013-0050

PATIENT
  Age: 67 Year
  Sex: Male

DRUGS (7)
  1. ENTACAPONE [Suspect]
     Indication: PARKINSON^S DISEASE
     Route: 048
  2. MADOPAR [Concomitant]
  3. ARTANE [Concomitant]
  4. FP [Concomitant]
  5. PERMAX [Concomitant]
  6. EXCEGRAN [Concomitant]
  7. MAGLAX [Concomitant]

REACTIONS (7)
  - Megacolon [None]
  - Volvulus [None]
  - Weaning failure [None]
  - Parkinson^s disease [None]
  - Dysphagia [None]
  - Abdominal distension [None]
  - Constipation [None]
